FAERS Safety Report 9000964 (Version 2)
Quarter: 2013Q1

REPORT INFORMATION
  Report Type: Spontaneous
  Country: GB (occurrence: None)
  Receive Date: 20121226
  Receipt Date: 20130103
  Transmission Date: 20140127
  Serious: Yes (Other)
  Sender: FDA-Public Use
  Company Number: AUR-APL-2012-05457

PATIENT
  Age: 64 Year
  Sex: Male

DRUGS (10)
  1. RAMIPRIL (RAMIPRIL) [Suspect]
     Indication: HYPERTENSION
     Route: 048
     Dates: start: 20120120, end: 20121204
  2. ORLISTAT [Suspect]
     Indication: OBESITY
     Dosage: (1 DOSAGE FORMS, 3 IN 1 D)
     Route: 048
     Dates: start: 20121128
  3. BISOPROLOL (BISOPROLOL) [Concomitant]
  4. LANSOPRAZOLE (LANSOPRAZOLE) [Concomitant]
  5. METFORMIN (METFORMIN) [Concomitant]
  6. QUININE BISULFATE (QUININE BISULFATE) [Concomitant]
  7. QVAR (BECLOMETASONE DIPROPIONATE) [Concomitant]
  8. SALBUTAMOL (SALBUTAMOL) [Concomitant]
  9. SIMVASTATIN (SIMVASTATIN) [Concomitant]
  10. WARFARIN (WARFARIN) [Concomitant]

REACTIONS (1)
  - Malaise [None]
